FAERS Safety Report 11705128 (Version 2)
Quarter: 2016Q4

REPORT INFORMATION
  Report Type: Spontaneous
  Country: FR (occurrence: FR)
  Receive Date: 20151106
  Receipt Date: 20161228
  Transmission Date: 20170206
  Serious: Yes (Death, Hospitalization)
  Sender: FDA-Public Use
  Company Number: FR-SA-2015SA173795

PATIENT
  Age: 90 Year
  Sex: Male

DRUGS (10)
  1. TRIATEC [Suspect]
     Active Substance: RAMIPRIL
     Route: 048
  2. AVODART [Concomitant]
     Active Substance: DUTASTERIDE
     Dosage: 0.5 MG
     Route: 048
  3. ALLOPURINOL. [Concomitant]
     Active Substance: ALLOPURINOL
     Route: 048
  4. SERESTA [Concomitant]
     Active Substance: OXAZEPAM
     Route: 048
  5. IMOVANE [Concomitant]
     Active Substance: ZOPICLONE
     Route: 048
  6. BURINEX [Concomitant]
     Active Substance: BUMETANIDE
     Route: 048
  7. PLAVIX [Suspect]
     Active Substance: CLOPIDOGREL BISULFATE
     Route: 048
  8. UROREC [Concomitant]
     Active Substance: SILODOSIN
     Dosage: 8 MG
     Route: 048
  9. KARDEGIC [Suspect]
     Active Substance: ASPIRIN LYSINE
     Route: 048
  10. SERESTA [Concomitant]
     Active Substance: OXAZEPAM
     Route: 048

REACTIONS (3)
  - Disturbance in attention [Fatal]
  - Subdural haematoma [Fatal]
  - Somnolence [Fatal]

NARRATIVE: CASE EVENT DATE: 20150323
